FAERS Safety Report 6461147-1 (Version None)
Quarter: 2009Q4

REPORT INFORMATION
  Report Type: 
  Country: None (occurrence: None)
  Receive Date: 20091123
  Receipt Date: 20091111
  Transmission Date: 20100525
  Serious: Yes (Other)
  Sender: FDA-Public Use
  Company Number: AU-1171566

PATIENT
  Age: 37 Year
  Sex: Female

DRUGS (1)
  1. TRIANCINOLONE ACETONIDE [Suspect]
     Dosage: BILATERAL INJECTION,  INTRAOCULAR
     Route: 031

REACTIONS (1)
  - BLINDNESS UNILATERAL [None]
